FAERS Safety Report 13114083 (Version 1)
Quarter: 2017Q1

REPORT INFORMATION
  Report Type: Spontaneous
  Country: US (occurrence: US)
  Receive Date: 20170113
  Receipt Date: 20170113
  Transmission Date: 20170428
  Serious: No
  Sender: FDA-Public Use
  Company Number: US-PFIZER INC-2016565955

PATIENT
  Age: 76 Year
  Sex: Male

DRUGS (3)
  1. SUTENT [Suspect]
     Active Substance: SUNITINIB MALATE
     Indication: METASTATIC RENAL CELL CARCINOMA
     Dosage: 50 MG, CYCLIC, (2 WEEKS ON/1 WEEK OFF)
     Dates: start: 20161209
  2. TYLENOL [Concomitant]
     Active Substance: ACETAMINOPHEN
     Dosage: UNK UNK, AS NEEDED
  3. TRAMADOL. [Concomitant]
     Active Substance: TRAMADOL
     Dosage: UNK

REACTIONS (8)
  - Oedema peripheral [Unknown]
  - Dysphonia [Unknown]
  - Skin exfoliation [Unknown]
  - Dysgeusia [Unknown]
  - Dry skin [Unknown]
  - Decreased appetite [Unknown]
  - Pain in extremity [Unknown]
  - Blister [Unknown]
